FAERS Safety Report 4286816-3 (Version None)
Quarter: 2004Q1

REPORT INFORMATION
  Report Type: 
  Country: None (occurrence: None)
  Receive Date: 20040204
  Receipt Date: 20040129
  Transmission Date: 20041129
  Serious: Yes (Death)
  Sender: FDA-Public Use
  Company Number: US-JNJFOC-20040200120

PATIENT
  Age: 33 Year
  Sex: Female

DRUGS (1)
  1. ORTHO TRI-CYCLEN [Suspect]
     Indication: DRUG USE FOR UNKNOWN INDICATION
     Dosage: 1 DOSE(S), 1 IN 1 DAY, ORAL
     Route: 048

REACTIONS (4)
  - COLITIS ISCHAEMIC [None]
  - EMBOLISM [None]
  - NECROTISING COLITIS [None]
  - OVERGROWTH BACTERIAL [None]
